FAERS Safety Report 4567549-2 (Version None)
Quarter: 2005Q1

REPORT INFORMATION
  Report Type: 
  Country: None (occurrence: None)
  Receive Date: 20050127
  Receipt Date: 20050120
  Transmission Date: 20050727
  Serious: Yes (Hospitalization)
  Sender: FDA-Public Use
  Company Number: K200500089

PATIENT
  Age: 38 Year
  Sex: Female

DRUGS (4)
  1. SONATA [Suspect]
     Dosage: 10 MG, (18 TABLETS) SINGLE, ORAL
     Route: 048
     Dates: start: 20050115, end: 20050115
  2. LORAZEPAM [Suspect]
     Dosage: 1 MG, (20 TABLETS) SINGLE, ORAL
     Route: 048
     Dates: start: 20050115, end: 20050115
  3. LENDORM [Suspect]
     Dosage: 0.25 MG, (4 TABLETS) SINGLE, ORAL
     Route: 048
     Dates: start: 20050115, end: 20050115
  4. ZOLPIDEM (ZOLPIDEM) 10MG [Suspect]
     Dosage: 10 MG, (20 TABLETS) SINGLE, ORAL
     Route: 048
     Dates: start: 20050115, end: 20050115

REACTIONS (2)
  - INTENTIONAL MISUSE [None]
  - SOMNOLENCE [None]
